FAERS Safety Report 16008869 (Version 1)
Quarter: 2019Q1

REPORT INFORMATION
  Report Type: Report from Study
  Country: US (occurrence: US)
  Receive Date: 20190226
  Receipt Date: 20190226
  Transmission Date: 20190418
  Serious: Yes (Life-Threatening, Hospitalization, Other)
  Sender: FDA-Public Use
  Company Number: PHHY2018US189299

PATIENT
  Age: 15 Year
  Sex: Male
  Weight: 35.1 kg

DRUGS (109)
  1. VANCOMYCIN [Concomitant]
     Active Substance: VANCOMYCIN
     Indication: PRODUCT USED FOR UNKNOWN INDICATION
     Dosage: (500-1,000 MG)
     Route: 041
     Dates: start: 20180731, end: 20181029
  2. URSODIOL. [Concomitant]
     Active Substance: URSODIOL
     Indication: PRODUCT USED FOR UNKNOWN INDICATION
     Dosage: 300 MG, UNK
     Route: 048
     Dates: start: 20180826, end: 20181024
  3. INOTUZUMAB [Concomitant]
     Active Substance: INOTUZUMAB OZOGAMICIN
     Indication: PRODUCT USED FOR UNKNOWN INDICATION
     Dosage: UNK  (PALNNED 3 DOSES)
     Route: 065
     Dates: start: 20181015
  4. POTASSIUM CHLORIDE. [Concomitant]
     Active Substance: POTASSIUM CHLORIDE
     Indication: PRODUCT USED FOR UNKNOWN INDICATION
     Dosage: 10 MEQ, UNK
     Route: 048
     Dates: start: 20180828
  5. RASBURICASE [Concomitant]
     Active Substance: RASBURICASE
     Indication: PRODUCT USED FOR UNKNOWN INDICATION
     Dosage: (4.5-7.5 MG)
     Route: 041
     Dates: start: 20180801, end: 20180810
  6. ONDANSETRON [Concomitant]
     Active Substance: ONDANSETRON
     Indication: PRODUCT USED FOR UNKNOWN INDICATION
     Dosage: 4 MG, UNK
     Route: 040
     Dates: start: 20180927
  7. MIDAZOLAM [Concomitant]
     Active Substance: MIDAZOLAM HYDROCHLORIDE
     Indication: PRODUCT USED FOR UNKNOWN INDICATION
     Dosage: 2 MG, UNK
     Route: 040
     Dates: start: 20180817
  8. AMLODIPINE [Concomitant]
     Active Substance: AMLODIPINE BESYLATE
     Dosage: 5 MG, UNK
     Route: 048
     Dates: start: 20180914, end: 20181024
  9. ESMOLOL [Concomitant]
     Active Substance: ESMOLOL HYDROCHLORIDE
     Indication: PRODUCT USED FOR UNKNOWN INDICATION
     Dosage: 50 MG, UNK
     Route: 040
     Dates: start: 20180904
  10. FAMOTIDINE. [Concomitant]
     Active Substance: FAMOTIDINE
     Indication: PRODUCT USED FOR UNKNOWN INDICATION
     Dosage: 20 MG, UNK
     Route: 040
     Dates: start: 20180727, end: 20181024
  11. FUROSEMIDE. [Concomitant]
     Active Substance: FUROSEMIDE
     Indication: PRODUCT USED FOR UNKNOWN INDICATION
     Dosage: (10-30 MG)
     Route: 040
     Dates: start: 20180802, end: 20180923
  12. IOPAMIDOL [Concomitant]
     Active Substance: IOPAMIDOL
     Indication: PRODUCT USED FOR UNKNOWN INDICATION
     Dosage: 15 ML, UNK
     Route: 048
     Dates: start: 20180821
  13. LEVETIRACETAM. [Concomitant]
     Active Substance: LEVETIRACETAM
     Dosage: (380-500 MG)
     Route: 041
     Dates: start: 20180825, end: 20181023
  14. LEVOFLOXACIN. [Concomitant]
     Active Substance: LEVOFLOXACIN
     Dosage: 400 MG, UNK
     Route: 041
     Dates: start: 20181021, end: 20181022
  15. LORAZEPAM. [Concomitant]
     Active Substance: LORAZEPAM
     Indication: PRODUCT USED FOR UNKNOWN INDICATION
     Dosage: 0.5 MG, UNK
     Route: 040
     Dates: start: 20180828
  16. VINCRISTINE [Suspect]
     Active Substance: VINCRISTINE
     Dosage: 324 MG, UNK
     Route: 041
     Dates: start: 20180814
  17. PEGASPARGASE [Suspect]
     Active Substance: PEGASPARGASE
     Indication: PRODUCT USED FOR UNKNOWN INDICATION
     Dosage: 3.300 U, UNK
     Route: 041
     Dates: start: 20180813
  18. K PHOS NEUTRAL [Concomitant]
     Active Substance: POTASSIUM PHOSPHATE, MONOBASIC\SODIUM PHOSPHATE, DIBASIC, ANHYDROUS\SODIUM PHOSPHATE, MONOBASIC, MONOHYDRATE
     Indication: HYPOKALAEMIA
     Dosage: (280-160-250 MG)
     Route: 048
     Dates: start: 20180728, end: 20180731
  19. K PHOS NEUTRAL [Concomitant]
     Active Substance: POTASSIUM PHOSPHATE, MONOBASIC\SODIUM PHOSPHATE, DIBASIC, ANHYDROUS\SODIUM PHOSPHATE, MONOBASIC, MONOHYDRATE
     Indication: HYPOPHOSPHATAEMIA
  20. NATEGLINIDE. [Concomitant]
     Active Substance: NATEGLINIDE
     Indication: PRODUCT USED FOR UNKNOWN INDICATION
     Dosage: (60-120 MG)
     Route: 048
     Dates: start: 20180810, end: 20180812
  21. MEROPENEM. [Concomitant]
     Active Substance: MEROPENEM
     Indication: PRODUCT USED FOR UNKNOWN INDICATION
     Dosage: 730 MG, UNK
     Route: 041
     Dates: start: 20180820, end: 20180918
  22. AMLODIPINE [Concomitant]
     Active Substance: AMLODIPINE BESYLATE
     Indication: PRODUCT USED FOR UNKNOWN INDICATION
     Dosage: 5 MG, UNK
     Dates: start: 20181011, end: 20181024
  23. ACYCLOVIR. [Concomitant]
     Active Substance: ACYCLOVIR
     Indication: PRODUCT USED FOR UNKNOWN INDICATION
     Dosage: 400 MG, UNK
     Route: 048
     Dates: start: 20180730, end: 20181024
  24. ALBUMIN (HUMAN) [Concomitant]
     Active Substance: ALBUMIN HUMAN
     Dosage: 37.5 G, UNK
     Route: 041
     Dates: start: 20180816
  25. CEFAZOLIN [Concomitant]
     Active Substance: CEFAZOLIN
     Indication: PRODUCT USED FOR UNKNOWN INDICATION
     Dosage: 1000 MG, UNK
     Route: 041
     Dates: start: 20180904
  26. CLONIDINE. [Concomitant]
     Active Substance: CLONIDINE
     Indication: PRODUCT USED FOR UNKNOWN INDICATION
     Dosage: (0.1-0.3 MG)
     Route: 062
     Dates: start: 20180825, end: 20180915
  27. HYDROXYUREA. [Concomitant]
     Active Substance: HYDROXYUREA
     Indication: PRODUCT USED FOR UNKNOWN INDICATION
     Dosage: 1000 MG, UNK
     Route: 048
     Dates: start: 20180803, end: 20180806
  28. CRESEMBA [Concomitant]
     Active Substance: ISAVUCONAZONIUM SULFATE
     Dosage: 372 MG, UNK
     Route: 041
     Dates: start: 20181011, end: 20181023
  29. DEXAMETHASONE. [Suspect]
     Active Substance: DEXAMETHASONE
     Dosage: 2 MG, UNK
     Route: 040
     Dates: start: 20180912, end: 20180915
  30. BLINATUMOMAB [Suspect]
     Active Substance: BLINATUMOMAB
     Indication: PRODUCT USED FOR UNKNOWN INDICATION
     Dosage: 7.1 UG, UNK
     Route: 041
     Dates: start: 20180914, end: 20180920
  31. MAGNESIUM SULFATE. [Concomitant]
     Active Substance: MAGNESIUM SULFATE
     Dosage: 9.4 MEQ, PRN
     Route: 042
     Dates: start: 20180827
  32. AFRIN [Concomitant]
     Active Substance: OXYMETAZOLINE
     Indication: PRODUCT USED FOR UNKNOWN INDICATION
     Dosage: 2 DF, BID
     Route: 045
     Dates: start: 20180809
  33. CLOTRIMAZOLE. [Concomitant]
     Active Substance: CLOTRIMAZOLE
     Indication: PRODUCT USED FOR UNKNOWN INDICATION
     Dosage: 10 MG, UNK
     Route: 065
     Dates: start: 20181011, end: 20181024
  34. BACITRACIN. [Concomitant]
     Active Substance: BACITRACIN
     Indication: PRODUCT USED FOR UNKNOWN INDICATION
     Dosage: UNK
     Route: 061
     Dates: start: 20180906, end: 20181005
  35. CLOTRIMAZOLE. [Concomitant]
     Active Substance: CLOTRIMAZOLE
     Indication: PRODUCT USED FOR UNKNOWN INDICATION
     Dosage: 10 MG, UNK
     Route: 048
     Dates: start: 20181011, end: 20181024
  36. DOCUSATE SODIUM. [Concomitant]
     Active Substance: DOCUSATE SODIUM
     Indication: PRODUCT USED FOR UNKNOWN INDICATION
     Dosage: 100 MG, UNK
     Route: 048
     Dates: start: 20180810, end: 20181021
  37. DEXAMETHASONE. [Suspect]
     Active Substance: DEXAMETHASONE
     Dosage: 10 MG/ML, UNK
     Route: 040
     Dates: start: 20180905
  38. BLINATUMOMAB [Suspect]
     Active Substance: BLINATUMOMAB
     Dosage: 21.3 UG, UNK (STOPPED AT DAY 27)
     Route: 041
     Dates: start: 20180921, end: 20181004
  39. VORICONAZOLE. [Concomitant]
     Active Substance: VORICONAZOLE
     Indication: PRODUCT USED FOR UNKNOWN INDICATION
     Dosage: (300-360 MG)
     Route: 041
     Dates: start: 20180926, end: 20181001
  40. SALIVA SUBSTITUTE [Concomitant]
     Active Substance: CARBOXYMETHYLCELLULOSE SODIUM\DEVICE\SORBINICATE
     Indication: PRODUCT USED FOR UNKNOWN INDICATION
     Dosage: 15 ML, UNK
     Dates: start: 20181011, end: 20181023
  41. SUCCINYLCHOLINE [Concomitant]
     Active Substance: SUCCINYLCHOLINE
     Indication: PRODUCT USED FOR UNKNOWN INDICATION
     Dosage: 60 MG, UNK
     Route: 040
     Dates: start: 20180904
  42. MAGNESIUM SULFATE. [Concomitant]
     Active Substance: MAGNESIUM SULFATE
     Dosage: 9 MEQ, UNK
     Route: 041
     Dates: start: 20180905
  43. MICAFUNGIN. [Concomitant]
     Active Substance: MICAFUNGIN SODIUM
     Dosage: 100 MG, UNK
     Route: 065
     Dates: start: 20180821
  44. TOBRAMYCIN. [Concomitant]
     Active Substance: TOBRAMYCIN
     Indication: PRODUCT USED FOR UNKNOWN INDICATION
     Dosage: (60-120 MG)
     Route: 041
     Dates: start: 20180827, end: 20180923
  45. NOXAFIL [Concomitant]
     Active Substance: POSACONAZOLE
     Dosage: 300 MG, UNK
     Route: 048
     Dates: start: 20180910, end: 20180926
  46. ALTEPLASE. [Concomitant]
     Active Substance: ALTEPLASE
     Indication: PRODUCT USED FOR UNKNOWN INDICATION
     Dosage: 2 MG, ONCE/SINGLE
     Route: 065
     Dates: start: 20181023
  47. ALBUMIN (HUMAN) [Concomitant]
     Active Substance: ALBUMIN HUMAN
     Dosage: 37.5 G, UNK
     Route: 041
     Dates: start: 20180830
  48. ALBUMIN (HUMAN) [Concomitant]
     Active Substance: ALBUMIN HUMAN
     Dosage: 100 ML, UNK
     Route: 041
     Dates: start: 20180917
  49. FOSCARNET SODIUM. [Concomitant]
     Active Substance: FOSCARNET SODIUM
     Indication: PRODUCT USED FOR UNKNOWN INDICATION
     Dosage: 2.304 MG, UNK
     Route: 041
     Dates: start: 20180827, end: 20180910
  50. HYDRALAZINE [Concomitant]
     Active Substance: HYDRALAZINE HYDROCHLORIDE
     Indication: HYPERTENSION
     Dosage: 8 MG, UNK
     Route: 040
     Dates: start: 20180921, end: 20181002
  51. HYDROXYUREA. [Concomitant]
     Active Substance: HYDROXYUREA
     Dosage: 2000 MG, UNK
     Route: 048
     Dates: start: 20180801, end: 20180810
  52. INOTUZUMAB OZOGAMICIN [Concomitant]
     Active Substance: INOTUZUMAB OZOGAMICIN
     Dosage: 1.075 MG, UNK
     Route: 041
     Dates: start: 20181022
  53. KETAMINE [Concomitant]
     Active Substance: KETAMINE
     Dosage: 100 MG, UNK
     Route: 040
     Dates: start: 20180910
  54. LIDOCAINE. [Concomitant]
     Active Substance: LIDOCAINE
     Indication: PRODUCT USED FOR UNKNOWN INDICATION
     Dosage: 50 MG, UNK
     Route: 058
     Dates: start: 20180910
  55. RECOTHROM [Concomitant]
     Active Substance: THROMBIN ALFA
     Indication: PRODUCT USED FOR UNKNOWN INDICATION
     Dosage: 20000 U, UNK
     Route: 061
     Dates: start: 20180809
  56. RECOTHROM [Concomitant]
     Active Substance: THROMBIN ALFA
     Dosage: 20000 U, UNK
     Route: 061
     Dates: start: 20180904
  57. POTASSIUM CHLORIDE. [Concomitant]
     Active Substance: POTASSIUM CHLORIDE
     Dosage: (20-40 MEQ)
     Route: 041
     Dates: start: 20180803, end: 20180930
  58. AMBISOME [Concomitant]
     Active Substance: AMPHOTERICIN B
     Indication: PRODUCT USED FOR UNKNOWN INDICATION
     Dosage: UNK
     Route: 041
     Dates: start: 20180825, end: 20181023
  59. AFRIN [Concomitant]
     Active Substance: OXYMETAZOLINE
     Dosage: 2 DF, BID
     Route: 045
     Dates: start: 20181017
  60. CEFEPIME [Concomitant]
     Active Substance: CEFEPIME HYDROCHLORIDE
     Indication: PRODUCT USED FOR UNKNOWN INDICATION
     Dosage: 2000 MG, UNK
     Route: 041
     Dates: start: 20180918, end: 20181005
  61. CEFEPIME [Concomitant]
     Active Substance: CEFEPIME HYDROCHLORIDE
     Dosage: 1.875 MG, UNK
     Route: 041
     Dates: start: 20180703, end: 20180816
  62. LEVETIRACETAM. [Concomitant]
     Active Substance: LEVETIRACETAM
     Indication: PRODUCT USED FOR UNKNOWN INDICATION
     Dosage: 500 MG, UNK
     Route: 048
     Dates: start: 20181005
  63. LEVOFLOXACIN. [Concomitant]
     Active Substance: LEVOFLOXACIN
     Indication: PRODUCT USED FOR UNKNOWN INDICATION
     Dosage: 500 MG, UNK
     Route: 048
     Dates: start: 20181023, end: 20181122
  64. KYMRIAH [Suspect]
     Active Substance: TISAGENLECLEUCEL
     Indication: ACUTE LYMPHOCYTIC LEUKAEMIA RECURRENT
     Dosage: 14.96 X 10^6 IN 44 ML
     Route: 042
     Dates: start: 20180727, end: 20180727
  65. DEXAMETHASONE. [Suspect]
     Active Substance: DEXAMETHASONE
     Indication: PRODUCT USED FOR UNKNOWN INDICATION
     Dosage: 13.2 MG, UNK
     Route: 041
     Dates: start: 20180808
  66. VINCRISTINE [Suspect]
     Active Substance: VINCRISTINE
     Indication: PRODUCT USED FOR UNKNOWN INDICATION
     Dosage: 2 MG, ONCE/SINGLE
     Route: 065
     Dates: start: 20180808, end: 20180808
  67. ONDANSETRON HCL [Concomitant]
     Active Substance: ONDANSETRON HYDROCHLORIDE
     Indication: PRODUCT USED FOR UNKNOWN INDICATION
     Dosage: 6 MG, UNK
     Route: 041
     Dates: start: 20180807, end: 20180825
  68. BACTRIM [Concomitant]
     Active Substance: SULFAMETHOXAZOLE\TRIMETHOPRIM
     Indication: PRODUCT USED FOR UNKNOWN INDICATION
     Dosage: (400-80 MG)
     Route: 048
     Dates: start: 20180722, end: 20181021
  69. PROPOFOL. [Concomitant]
     Active Substance: PROPOFOL
     Dosage: (1000 MG/100 ML)
     Route: 041
     Dates: start: 20180825, end: 20180826
  70. MIRALAX [Concomitant]
     Active Substance: POLYETHYLENE GLYCOL 3350
     Indication: PRODUCT USED FOR UNKNOWN INDICATION
     Dosage: 17 G, PRN
     Route: 048
     Dates: start: 20180818, end: 20180819
  71. MORPHINE [Concomitant]
     Active Substance: MORPHINE
     Indication: PRODUCT USED FOR UNKNOWN INDICATION
     Dosage: 1.5 MG, Q4H
     Route: 042
     Dates: start: 20180810, end: 20180905
  72. NOXAFIL [Concomitant]
     Active Substance: POSACONAZOLE
     Indication: PRODUCT USED FOR UNKNOWN INDICATION
     Dosage: 3 DF, QD
     Route: 048
     Dates: start: 20180618
  73. AMLODIPINE [Concomitant]
     Active Substance: AMLODIPINE BESYLATE
     Dosage: 2.5 MG, UNK
     Route: 048
     Dates: start: 20180913
  74. CLONIDINE. [Concomitant]
     Active Substance: CLONIDINE
     Indication: PRODUCT USED FOR UNKNOWN INDICATION
     Route: 065
  75. ALBUMIN (HUMAN) [Concomitant]
     Active Substance: ALBUMIN HUMAN
     Indication: PRODUCT USED FOR UNKNOWN INDICATION
     Dosage: 25 G, QD
     Route: 041
     Dates: start: 20180802
  76. CEFEPIME [Concomitant]
     Active Substance: CEFEPIME HYDROCHLORIDE
     Dosage: 2000 MG, UNK
     Route: 041
     Dates: start: 20181016, end: 20181021
  77. CHLORHEXIDINE [Concomitant]
     Active Substance: CHLORHEXIDINE
     Indication: PRODUCT USED FOR UNKNOWN INDICATION
     Dosage: 15 ML, UNK
     Route: 048
     Dates: start: 20180826, end: 20180827
  78. FENTANYL CITRATE. [Concomitant]
     Active Substance: FENTANYL CITRATE
     Indication: PRODUCT USED FOR UNKNOWN INDICATION
     Dosage: (25-30 MCG)
     Route: 040
     Dates: start: 20180826, end: 20180927
  79. LEVALBUTEROL. [Concomitant]
     Active Substance: LEVALBUTEROL
     Indication: PRODUCT USED FOR UNKNOWN INDICATION
     Dosage: (1.25 MG/0.5 ML)
     Route: 065
     Dates: start: 20180916, end: 20181023
  80. DEXAMETHASONE. [Suspect]
     Active Substance: DEXAMETHASONE
     Dosage: 4 MG, UNK
     Route: 040
     Dates: start: 20180904, end: 20180927
  81. VINCRISTINE [Suspect]
     Active Substance: VINCRISTINE
     Dosage: 324 MG, UNK
     Route: 041
     Dates: start: 20180821
  82. POTASSIUM ACETATE. [Concomitant]
     Active Substance: POTASSIUM ACETATE
     Indication: PRODUCT USED FOR UNKNOWN INDICATION
     Dosage: 20 MEQ, UNK
     Route: 041
     Dates: start: 20180925
  83. MAGNESIUM SULFATE. [Concomitant]
     Active Substance: MAGNESIUM SULFATE
     Indication: PRODUCT USED FOR UNKNOWN INDICATION
     Dosage: 18.8 MEQ, PRN
     Route: 042
     Dates: start: 20180815
  84. MAGNESIUM SULFATE. [Concomitant]
     Active Substance: MAGNESIUM SULFATE
     Dosage: 9.6 MEQ, UNK
     Route: 041
     Dates: start: 20181015
  85. SENNA [Concomitant]
     Active Substance: SENNA LEAF\SENNOSIDES\SENNOSIDES A AND B
     Indication: PRODUCT USED FOR UNKNOWN INDICATION
     Dosage: 17.2 MG, UNK
     Route: 065
     Dates: start: 20180818
  86. ALLOPURINOL. [Concomitant]
     Active Substance: ALLOPURINOL
     Indication: PRODUCT USED FOR UNKNOWN INDICATION
     Dosage: 100 MG, UNK
     Route: 048
     Dates: start: 20180803, end: 20181005
  87. ALTERNAGEL [Concomitant]
     Active Substance: ALUMINUM HYDROXIDE
     Indication: PRODUCT USED FOR UNKNOWN INDICATION
     Dosage: 10 ML, UNK
     Route: 048
     Dates: start: 20180810
  88. FENTANYL. [Concomitant]
     Active Substance: FENTANYL
     Indication: PRODUCT USED FOR UNKNOWN INDICATION
     Dosage: 50 UG, UNK
     Route: 041
     Dates: start: 20180825, end: 20180826
  89. SOLU-CORTEF [Concomitant]
     Active Substance: HYDROCORTISONE SODIUM SUCCINATE
     Indication: PRODUCT USED FOR UNKNOWN INDICATION
     Dosage: (30-40 MG)
     Route: 040
     Dates: start: 20180726, end: 20181119
  90. HYDROGEN PEROXIDE. [Concomitant]
     Active Substance: HYDROGEN PEROXIDE
     Indication: PRODUCT USED FOR UNKNOWN INDICATION
     Dosage: UNK
     Route: 061
     Dates: start: 20180720, end: 20180824
  91. INOTUZUMAB OZOGAMICIN [Concomitant]
     Active Substance: INOTUZUMAB OZOGAMICIN
     Dosage: 0.675 MG, UNK
     Route: 041
     Dates: start: 20181119
  92. CRESEMBA [Concomitant]
     Active Substance: ISAVUCONAZONIUM SULFATE
     Indication: PRODUCT USED FOR UNKNOWN INDICATION
     Dosage: 372 MG, UNK
     Route: 048
     Dates: start: 20181024
  93. LABETALOL [Concomitant]
     Active Substance: LABETALOL\LABETALOL HYDROCHLORIDE
     Indication: PRODUCT USED FOR UNKNOWN INDICATION
     Dosage: 10 MG, UNK
     Route: 040
     Dates: start: 20180826, end: 20181005
  94. DEXAMETHASONE. [Suspect]
     Active Substance: DEXAMETHASONE
     Dosage: UNK
     Route: 065
     Dates: start: 20180821
  95. SEVELAMER [Concomitant]
     Active Substance: SEVELAMER
     Indication: PRODUCT USED FOR UNKNOWN INDICATION
     Dosage: (800-1,600 MG)
     Route: 048
     Dates: start: 20180725, end: 20180812
  96. INOTUZUMAB [Concomitant]
     Active Substance: INOTUZUMAB OZOGAMICIN
     Dosage: UNK
     Route: 065
     Dates: start: 20181027
  97. MEROPENEM. [Concomitant]
     Active Substance: MEROPENEM
     Dosage: 770 MG, UNK
     Route: 041
     Dates: start: 20181010, end: 20181016
  98. MIDAZOLAM [Concomitant]
     Active Substance: MIDAZOLAM HYDROCHLORIDE
     Dosage: 2 MG, UNK
     Route: 040
     Dates: start: 20180910
  99. PROPOFOL. [Concomitant]
     Active Substance: PROPOFOL
     Indication: PRODUCT USED FOR UNKNOWN INDICATION
     Dosage: (500-200) MG
     Route: 040
     Dates: start: 20180817, end: 20180927
  100. FLAGYL [Concomitant]
     Active Substance: METRONIDAZOLE\METRONIDAZOLE HYDROCHLORIDE
     Indication: PRODUCT USED FOR UNKNOWN INDICATION
     Dosage: 385 MG, Q6H
     Route: 042
     Dates: start: 20180825, end: 20180926
  101. FLAGYL [Concomitant]
     Active Substance: METRONIDAZOLE\METRONIDAZOLE HYDROCHLORIDE
     Dosage: 385 MG, Q6H
     Route: 042
     Dates: start: 20180902
  102. MICAFUNGIN. [Concomitant]
     Active Substance: MICAFUNGIN SODIUM
     Indication: PRODUCT USED FOR UNKNOWN INDICATION
     Dosage: (50-150 MG)
     Route: 041
     Dates: start: 20180821, end: 20181023
  103. ACETAMINOPHEN. [Concomitant]
     Active Substance: ACETAMINOPHEN
     Indication: PRODUCT USED FOR UNKNOWN INDICATION
     Dosage: 500 MG, UNK
     Route: 048
     Dates: start: 20180720
  104. CALCIUM GLUCONATE. [Concomitant]
     Active Substance: CALCIUM GLUCONATE
     Indication: PRODUCT USED FOR UNKNOWN INDICATION
     Dosage: 2000 MG, UNK
     Route: 041
     Dates: start: 20180921, end: 20181004
  105. CEFEPIME [Concomitant]
     Active Substance: CEFEPIME HYDROCHLORIDE
     Dosage: 1.475 MG, UNK
     Route: 041
     Dates: start: 20180817, end: 20180820
  106. IMMUNE GLOBULIN NOS [Concomitant]
     Active Substance: IMMUNE GLOBULIN NOS
     Indication: PRODUCT USED FOR UNKNOWN INDICATION
     Dosage: 20 G, UNK
     Route: 041
     Dates: start: 20180726, end: 20180827
  107. INOTUZUMAB OZOGAMICIN [Concomitant]
     Active Substance: INOTUZUMAB OZOGAMICIN
     Indication: PRODUCT USED FOR UNKNOWN INDICATION
     Dosage: 1.075 MG, UNK
     Route: 041
     Dates: start: 20181015
  108. INOTUZUMAB OZOGAMICIN [Concomitant]
     Active Substance: INOTUZUMAB OZOGAMICIN
     Dosage: 0.675 MG, UNK
     Route: 041
     Dates: start: 20181029
  109. KETAMINE [Concomitant]
     Active Substance: KETAMINE
     Indication: PRODUCT USED FOR UNKNOWN INDICATION
     Dosage: 20 MG, UNK
     Route: 040
     Dates: start: 20180817

REACTIONS (51)
  - Brain oedema [Unknown]
  - Bacteraemia [Not Recovered/Not Resolved]
  - Facial paralysis [Recovered/Resolved]
  - Abdominal distension [Unknown]
  - Hyperglycaemia [Unknown]
  - Slow response to stimuli [Recovered/Resolved]
  - Mental disorder [Recovered/Resolved]
  - Decreased appetite [Recovered/Resolved]
  - Acute lymphocytic leukaemia recurrent [Unknown]
  - Pyrexia [Not Recovered/Not Resolved]
  - Dyspnoea [Unknown]
  - Therapy non-responder [Unknown]
  - Pharyngeal paraesthesia [Not Recovered/Not Resolved]
  - Chromaturia [Not Recovered/Not Resolved]
  - Anal incontinence [Recovered/Resolved]
  - Vomiting [Recovered/Resolved]
  - Cough [Not Recovered/Not Resolved]
  - Malignant neoplasm progression [Unknown]
  - Central nervous system lesion [Unknown]
  - Aspergillus test positive [Unknown]
  - C-reactive protein increased [Unknown]
  - Paraesthesia [Recovered/Resolved]
  - Haematuria [Not Recovered/Not Resolved]
  - Confusional state [Recovered/Resolved]
  - Hepatosplenomegaly [Recovered/Resolved]
  - Mitral valve disease [Unknown]
  - Hypokalaemia [Unknown]
  - Febrile neutropenia [Recovered/Resolved with Sequelae]
  - Neuropathy peripheral [Recovered/Resolved]
  - Kidney enlargement [Unknown]
  - Pancytopenia [Unknown]
  - Hypertension [Unknown]
  - Pyrexia [Recovered/Resolved]
  - Epistaxis [Recovered/Resolved]
  - Cushingoid [Unknown]
  - Electroencephalogram abnormal [Unknown]
  - Tumour lysis syndrome [Recovered/Resolved]
  - Cerebral ventricle dilatation [Unknown]
  - Seizure [Recovered/Resolved]
  - Pneumonia fungal [Recovering/Resolving]
  - Hyperphosphataemia [Recovered/Resolved]
  - Urinary incontinence [Recovered/Resolved]
  - Tremor [Recovered/Resolved]
  - Encephalopathy [Recovered/Resolved]
  - Lymphadenopathy [Unknown]
  - Hyperleukocytosis [Recovered/Resolved]
  - Lung consolidation [Not Recovered/Not Resolved]
  - Lower respiratory tract infection fungal [Unknown]
  - Cerebral atrophy [Unknown]
  - Pleural effusion [Unknown]
  - Skin hyperpigmentation [Recovered/Resolved]

NARRATIVE: CASE EVENT DATE: 20180731
